FAERS Safety Report 4910581-7 (Version None)
Quarter: 2006Q1

REPORT INFORMATION
  Report Type: 
  Country: None (occurrence: None)
  Receive Date: 20060208
  Receipt Date: 20060208
  Transmission Date: 20060701
  Serious: Yes (Hospitalization)
  Sender: FDA-Public Use
  Company Number: None

PATIENT
  Age: 63 Year
  Sex: Male
  Weight: 62.73 kg

DRUGS (5)
  1. ZELNORM [Suspect]
     Indication: IMPAIRED GASTRIC EMPTYING
     Dosage: 6 MG TID ORAL THREE TIMES DAILY
     Route: 048
     Dates: start: 20050921, end: 20051102
  2. ERYTHROMYCIN [Concomitant]
  3. SIMETHICONE [Concomitant]
  4. CARBIDOPA + LEVODOPA [Concomitant]
  5. DOCUSATE NA [Concomitant]

REACTIONS (4)
  - ABDOMINAL PAIN UPPER [None]
  - CHOLELITHIASIS [None]
  - DILATATION INTRAHEPATIC DUCT ACQUIRED [None]
  - LIVER FUNCTION TEST ABNORMAL [None]
